FAERS Safety Report 13524789 (Version 1)
Quarter: 2017Q2

REPORT INFORMATION
  Report Type: Spontaneous
  Country: US (occurrence: US)
  Receive Date: 20170508
  Receipt Date: 20170508
  Transmission Date: 20170830
  Serious: No
  Sender: FDA-Public Use
  Company Number: US-ROCHE-1084828

PATIENT
  Age: 50 Year
  Sex: Male

DRUGS (10)
  1. BEVACIZUMAB [Suspect]
     Active Substance: BEVACIZUMAB
     Indication: GLIOBLASTOMA MULTIFORME
     Route: 065
  2. CARBOPLATIN. [Concomitant]
     Active Substance: CARBOPLATIN
     Dosage: DOSE REDUCED
     Route: 065
  3. LEVETIRACETAM. [Concomitant]
     Active Substance: LEVETIRACETAM
     Indication: EPILEPSY
  4. BEVACIZUMAB [Suspect]
     Active Substance: BEVACIZUMAB
     Route: 065
  5. TEMOZOLOMIDE. [Concomitant]
     Active Substance: TEMOZOLOMIDE
     Indication: GLIOBLASTOMA MULTIFORME
     Dosage: THERAPY DISCONTINUED
     Route: 065
  6. LANSOPRAZOLE. [Concomitant]
     Active Substance: LANSOPRAZOLE
     Indication: PROPHYLAXIS
  7. CARMUSTINE [Concomitant]
     Active Substance: CARMUSTINE
     Indication: GLIOBLASTOMA MULTIFORME
     Route: 065
  8. CARBOPLATIN. [Concomitant]
     Active Substance: CARBOPLATIN
     Indication: GLIOBLASTOMA MULTIFORME
     Dosage: AREA UNDER THE CONCENTRATION-TIME CURVE, 5
     Route: 065
  9. TEMOZOLOMIDE. [Concomitant]
     Active Substance: TEMOZOLOMIDE
     Route: 065
  10. DEXAMETHASONE. [Concomitant]
     Active Substance: DEXAMETHASONE
     Indication: ANTIINFLAMMATORY THERAPY

REACTIONS (1)
  - Tongue geographic [Recovered/Resolved]
